FAERS Safety Report 6816980-0 (Version None)
Quarter: 2010Q2

REPORT INFORMATION
  Report Type: 
  Country: None (occurrence: None)
  Receive Date: 20100630
  Receipt Date: 20100623
  Transmission Date: 20101027
  Serious: Yes (Hospitalization)
  Sender: FDA-Public Use
  Company Number: 1000014508

PATIENT
  Age: 83 Year
  Sex: Female

DRUGS (7)
  1. CITALOPRAM HYDROBROMIDE [Suspect]
     Indication: DEPRESSION
     Dosage: 20 MG (20 MG, 1 IN 1 D)
  2. CITALOPRAM HYDROBROMIDE [Suspect]
     Indication: DEPRESSION
     Dosage: 10 MG (10 MG, 1 IN 1 D)
  3. CARBASALATE [Concomitant]
  4. CARBAMAZEPINE [Concomitant]
  5. LEVETIRACETAM [Concomitant]
  6. CALCIUM CARBONATE [Concomitant]
  7. ALENDRONATE SODIUM [Concomitant]

REACTIONS (12)
  - AMMONIA INCREASED [None]
  - BLOOD PRESSURE INCREASED [None]
  - CONFUSIONAL STATE [None]
  - FALL [None]
  - HEPATITIS [None]
  - HEPATITIS VIRAL [None]
  - HEPATOTOXICITY [None]
  - LIVER INJURY [None]
  - LIVER PALPABLE SUBCOSTAL [None]
  - LOSS OF CONSCIOUSNESS [None]
  - PALMAR ERYTHEMA [None]
  - SPIDER NAEVUS [None]
